FAERS Safety Report 16251485 (Version 1)
Quarter: 2019Q2

REPORT INFORMATION
  Report Type: Spontaneous
  Country: US (occurrence: US)
  Receive Date: 20190426
  Receipt Date: 20190426
  Transmission Date: 20190711
  Serious: Yes (Other)
  Sender: FDA-Public Use
  Company Number: None

PATIENT
  Age: 37 Year
  Sex: Female
  Weight: 52.65 kg

DRUGS (6)
  1. PREDNISONE. [Concomitant]
     Active Substance: PREDNISONE
  2. VITAMIN D3 [Concomitant]
     Active Substance: CHOLECALCIFEROL
  3. DOXYCYCLINE. [Concomitant]
     Active Substance: DOXYCYCLINE
  4. AFRIN [Concomitant]
     Active Substance: OXYMETAZOLINE
  5. AYR NASAL GEL [Concomitant]
     Active Substance: SODIUM CHLORIDE
  6. STERILE SALINE NASAL MIST [Suspect]
     Active Substance: SODIUM CHLORIDE
     Indication: SINUS DISORDER
     Dates: start: 20181115, end: 20190426

REACTIONS (3)
  - Paranasal cyst [None]
  - Recalled product administered [None]
  - Sinusitis [None]

NARRATIVE: CASE EVENT DATE: 20190313
